FAERS Safety Report 7800646-4 (Version None)
Quarter: 2011Q4

REPORT INFORMATION
  Report Type: 
  Country: None (occurrence: None)
  Receive Date: 20111006
  Receipt Date: 20110926
  Transmission Date: 20120403
  Serious: Yes (Hospitalization)
  Sender: FDA-Public Use
  Company Number: US-BAYER-2011-024271

PATIENT
  Age: 27 Year
  Sex: Female
  Weight: 71 kg

DRUGS (4)
  1. IBUPROFEN (ADVIL) [Concomitant]
     Dosage: UNK UNK, PRN
     Route: 048
  2. NABUMETONE [Concomitant]
     Dosage: 500 MG, BID
     Route: 048
     Dates: start: 20081231
  3. ACETAMINOPHEN AND HYDROCODONE BITARTRATE [Concomitant]
     Indication: PAIN
     Dosage: UNK
     Route: 048
     Dates: start: 20081231
  4. DROSPIRENONE AND ETHINYL ESTRADIOL [Suspect]
     Indication: CONTRACEPTION
     Dosage: UNK
     Dates: start: 20080901, end: 20090101

REACTIONS (7)
  - PULMONARY EMBOLISM [None]
  - PLEURAL EFFUSION [None]
  - ANXIETY [None]
  - PULMONARY INFARCTION [None]
  - PAIN [None]
  - EMOTIONAL DISTRESS [None]
  - INJURY [None]
